FAERS Safety Report 19508697 (Version 1)
Quarter: 2021Q3

REPORT INFORMATION
  Report Type: Spontaneous
  Country: CA (occurrence: CA)
  Receive Date: 20210708
  Receipt Date: 20210708
  Transmission Date: 20211014
  Serious: Yes (Other)
  Sender: FDA-Public Use
  Company Number: CA-PFIZER INC-2021772408

PATIENT
  Age: 13 Year
  Sex: Female
  Weight: 47 kg

DRUGS (8)
  1. NABILONE [Concomitant]
     Active Substance: NABILONE
  2. ZOLEDRONIC ACID [Suspect]
     Active Substance: ZOLEDRONIC ACID
     Indication: OSTEOPOROSIS
     Dosage: UNK. ONCE
     Route: 042
  3. LANSOPRAZOLE. [Concomitant]
     Active Substance: LANSOPRAZOLE
  4. VINBLASTINE SULFATE. [Concomitant]
     Active Substance: VINBLASTINE SULFATE
  5. FLUOXETINE [Concomitant]
     Active Substance: FLUOXETINE HYDROCHLORIDE
  6. GRANISETRON [Concomitant]
     Active Substance: GRANISETRON
  7. VITAMIN D [COLECALCIFEROL] [Concomitant]
     Active Substance: CHOLECALCIFEROL
  8. GABAPENTIN. [Concomitant]
     Active Substance: GABAPENTIN

REACTIONS (6)
  - Thrombosis [Unknown]
  - Vomiting [Unknown]
  - Haematemesis [Unknown]
  - Myalgia [Unknown]
  - Off label use [Unknown]
  - Nausea [Recovered/Resolved]
